FAERS Safety Report 10979663 (Version 2)
Quarter: 2015Q2

REPORT INFORMATION
  Report Type: Spontaneous
  Country: US (occurrence: US)
  Receive Date: 20150402
  Receipt Date: 20150525
  Transmission Date: 20150821
  Serious: No
  Sender: FDA-Public Use
  Company Number: US-JNJFOC-20140116479

PATIENT
  Age: 70 Year
  Sex: Female
  Weight: 58.97 kg

DRUGS (3)
  1. IMODIUM MULTI-SYMPTOM RELIEF [Suspect]
     Active Substance: DIMETHICONE\LOPERAMIDE HYDROCHLORIDE
     Route: 048
  2. IMODIUM MULTI-SYMPTOM RELIEF [Suspect]
     Active Substance: DIMETHICONE\LOPERAMIDE HYDROCHLORIDE
     Indication: DIARRHOEA
     Dosage: 2 CAPLETS FIRST DOSE, 1 CAPLET AFTER EACH SUBSEQUENT LOOSE STOOL NOT EXCEEDING 4 CAPLETS
     Route: 048
     Dates: start: 20140118, end: 20140123
  3. PEPTO-BISMOL [Concomitant]
     Active Substance: BISMUTH SUBSALICYLATE\CALCIUM CARBONATE
     Indication: ABDOMINAL DISCOMFORT
     Dosage: AS NEEDED
     Route: 065

REACTIONS (1)
  - Drug ineffective [Unknown]
